FAERS Safety Report 20969373 (Version 4)
Quarter: 2022Q3

REPORT INFORMATION
  Report Type: Report from Study
  Country: US (occurrence: US)
  Receive Date: 20220616
  Receipt Date: 20220901
  Transmission Date: 20221027
  Serious: Yes (Other)
  Sender: FDA-Public Use
  Company Number: US-GLAXOSMITHKLINE-US2022AMR083223

PATIENT

DRUGS (1)
  1. BELANTAMAB MAFODOTIN [Suspect]
     Active Substance: BELANTAMAB MAFODOTIN
     Indication: Plasma cell myeloma
     Dosage: 220 MG, Z:EVERY 3 WEEKS
     Dates: start: 20220427, end: 20220518

REACTIONS (6)
  - Keratopathy [Unknown]
  - Visual acuity reduced [Unknown]
  - Night blindness [Not Recovered/Not Resolved]
  - Photophobia [Not Recovered/Not Resolved]
  - Foreign body sensation in eyes [Not Recovered/Not Resolved]
  - Corneal disorder [Unknown]

NARRATIVE: CASE EVENT DATE: 20220506
